FAERS Safety Report 18895177 (Version 2)
Quarter: 2021Q1

REPORT INFORMATION
  Report Type: Spontaneous
  Country: US (occurrence: US)
  Receive Date: 20210215
  Receipt Date: 20210222
  Transmission Date: 20210420
  Serious: No
  Sender: FDA-Public Use
  Company Number: US-PFIZER INC-2021135356

PATIENT
  Age: 61 Year
  Sex: Female

DRUGS (1)
  1. IBRANCE [Suspect]
     Active Substance: PALBOCICLIB
     Indication: BREAST CANCER FEMALE
     Dosage: 100 MG, CYCLIC, (DAILY ON DAYS 1?21 EVERY 28 DAYS)
     Route: 048
     Dates: start: 20200617

REACTIONS (3)
  - Onychomadesis [Unknown]
  - Rash [Unknown]
  - Herpes zoster [Unknown]
